FAERS Safety Report 6638938-7 (Version None)
Quarter: 2010Q1

REPORT INFORMATION
  Report Type: 
  Country: None (occurrence: None)
  Receive Date: 20100317
  Receipt Date: 20100312
  Transmission Date: 20100710
  Serious: Yes (Other)
  Sender: FDA-Public Use
  Company Number: PHHY2010BE15342

PATIENT
  Age: 65 Year
  Sex: Female

DRUGS (1)
  1. STALEVO 100 [Suspect]
     Dosage: 100 MG, TID

REACTIONS (3)
  - DYSPNOEA [None]
  - HYPERTONIA [None]
  - MUSCLE SPASMS [None]
